FAERS Safety Report 8225443-X (Version None)
Quarter: 2012Q1

REPORT INFORMATION
  Report Type: 
  Country: None (occurrence: None)
  Receive Date: 20120321
  Receipt Date: 20120315
  Transmission Date: 20120608
  Serious: Yes (Life-Threatening, Other)
  Sender: FDA-Public Use
  Company Number: FR-ELI_LILLY_AND_COMPANY-FR201203004096

PATIENT
  Sex: Male

DRUGS (8)
  1. NEBIVOLOL HCL [Concomitant]
  2. LANSOPRAZOLE [Concomitant]
  3. TAXOL [Concomitant]
     Indication: PROSTATE CANCER
     Dosage: 1 INFUSION, QD
     Route: 042
     Dates: start: 20120207
  4. RAMIPRIL [Concomitant]
  5. ATORVASTATIN [Concomitant]
  6. GEMZAR [Suspect]
     Indication: PROSTATE CANCER METASTATIC
     Dosage: 1 INFUSION, QD
     Route: 042
     Dates: start: 20120207
  7. GAVISCON                                /GFR/ [Concomitant]
  8. ASPIRIN [Concomitant]

REACTIONS (4)
  - PNEUMONIA [None]
  - OFF LABEL USE [None]
  - INAPPROPRIATE SCHEDULE OF DRUG ADMINISTRATION [None]
  - MYOCARDIAL INFARCTION [None]
